FAERS Safety Report 17466997 (Version 1)
Quarter: 2020Q1

REPORT INFORMATION
  Report Type: Spontaneous
  Country: US (occurrence: US)
  Receive Date: 20200227
  Receipt Date: 20200227
  Transmission Date: 20200409
  Serious: Yes (Death, Hospitalization)
  Sender: FDA-Public Use
  Company Number: US-MYLANLABS-2020M1021157

PATIENT
  Age: 59 Year
  Sex: Male

DRUGS (10)
  1. N-ACETYLCYSTEINE [Concomitant]
     Active Substance: ACETYLCYSTEINE
     Indication: ALANINE AMINOTRANSFERASE INCREASED
     Route: 065
  2. VASOPRESSIN. [Suspect]
     Active Substance: VASOPRESSIN
     Indication: POISONING
     Route: 065
  3. VANCOMYCIN [Concomitant]
     Active Substance: VANCOMYCIN
     Indication: ABDOMINAL INFECTION
     Route: 042
  4. DIMERCAPROL. [Suspect]
     Active Substance: DIMERCAPROL
     Indication: METAL POISONING
     Route: 065
  5. N-ACETYLCYSTEINE [Concomitant]
     Active Substance: ACETYLCYSTEINE
     Indication: ASPARTATE AMINOTRANSFERASE INCREASED
  6. EPINEPHRINE. [Suspect]
     Active Substance: EPINEPHRINE
     Indication: POISONING
     Route: 065
  7. NOREPINEPHRINE. [Suspect]
     Active Substance: NOREPINEPHRINE
     Indication: POISONING
     Route: 065
  8. METRONIDAZOLE. [Concomitant]
     Active Substance: METRONIDAZOLE
     Indication: ABDOMINAL INFECTION
     Route: 042
  9. DIMERCAPTOSUCCINIC ACID [Suspect]
     Active Substance: 2,3-DIMERCAPTOSUCCINIC ACID
     Indication: METAL POISONING
     Route: 065
  10. PHENYLEPHRINE [Suspect]
     Active Substance: PHENYLEPHRINE HYDROCHLORIDE
     Indication: POISONING
     Route: 065

REACTIONS (1)
  - Drug ineffective [Fatal]
